FAERS Safety Report 17290275 (Version 4)
Quarter: 2020Q1

REPORT INFORMATION
  Report Type: Report from Study
  Country: US (occurrence: US)
  Receive Date: 20200121
  Receipt Date: 20200218
  Transmission Date: 20200409
  Serious: Yes (Other)
  Sender: FDA-Public Use
  Company Number: US-ROCHE-2525809

PATIENT
  Age: 51 Year
  Sex: Female
  Weight: 75.9 kg

DRUGS (21)
  1. CETIRIZINE [Concomitant]
     Active Substance: CETIRIZINE HYDROCHLORIDE
  2. NAPROXEN. [Concomitant]
     Active Substance: NAPROXEN
  3. SUCRALFATE. [Concomitant]
     Active Substance: SUCRALFATE
  4. TIZANIDINE. [Concomitant]
     Active Substance: TIZANIDINE
  5. GLYCOPYRROLATE [GLYCOPYRRONIUM] [Concomitant]
     Active Substance: GLYCOPYRRONIUM
  6. IPRATROPIUM [Concomitant]
     Active Substance: IPRATROPIUM
  7. OBINUTUZUMAB. [Suspect]
     Active Substance: OBINUTUZUMAB
     Indication: B-CELL LYMPHOMA
     Dosage: ON 25/SEP/2019, SHE RECEIVED LAST DOSE OF INTRAVENOUS OBINUTUZUMAB PRIOR TO THE ONSET OF SERIOUS ADV
     Route: 042
     Dates: start: 20190830, end: 20190925
  8. ALBUTEROL [SALBUTAMOL] [Concomitant]
     Active Substance: ALBUTEROL
  9. DICLOFENAC [Concomitant]
     Active Substance: DICLOFENAC
  10. HYDROCODONE/ACETAMINOPHEN [Concomitant]
     Active Substance: ACETAMINOPHEN\HYDROCODONE
  11. LISINOPRIL. [Concomitant]
     Active Substance: LISINOPRIL
  12. VARENICLINE [Concomitant]
     Active Substance: VARENICLINE
  13. GLIMEPIRIDE. [Concomitant]
     Active Substance: GLIMEPIRIDE
  14. MONTELUKAST [Concomitant]
     Active Substance: MONTELUKAST SODIUM
  15. TGR 1202 [Suspect]
     Active Substance: UMBRALISIB
     Indication: B-CELL LYMPHOMA
     Dosage: ON 18/OCT/2019, SHE RECEIVED LAST DOSE OF ORAL TGR 1202 PRIOR TO THE ONSET OF SERIOUS ADVERSE EVENT
     Route: 048
     Dates: start: 20190830, end: 20191018
  16. GABAPENTIN. [Concomitant]
     Active Substance: GABAPENTIN
  17. FLUTICASONE. [Concomitant]
     Active Substance: FLUTICASONE
  18. OMEPRAZOLE. [Concomitant]
     Active Substance: OMEPRAZOLE
  19. TERBINAFINE. [Concomitant]
     Active Substance: TERBINAFINE
  20. ATORVASTATIN [Concomitant]
     Active Substance: ATORVASTATIN
  21. ONDANSETRON [Concomitant]
     Active Substance: ONDANSETRON

REACTIONS (2)
  - Muscular weakness [Not Recovered/Not Resolved]
  - Pain in extremity [Not Recovered/Not Resolved]

NARRATIVE: CASE EVENT DATE: 20191018
